FAERS Safety Report 14699919 (Version 1)
Quarter: 2018Q1

REPORT INFORMATION
  Report Type: Spontaneous
  Country: IE (occurrence: IE)
  Receive Date: 20180330
  Receipt Date: 20180330
  Transmission Date: 20180509
  Serious: Yes (Other)
  Sender: FDA-Public Use
  Company Number: IE-HQ SPECIALTY-IE-2018INT000041

PATIENT
  Sex: Female
  Weight: 1.5 kg

DRUGS (4)
  1. DEXMEDETOMIDINE HYDROCHLORIDE. [Suspect]
     Active Substance: DEXMEDETOMIDINE HYDROCHLORIDE
     Indication: ANALGESIC THERAPY
     Dosage: 0.8 ?G/KG, OVER 10 MINUTES
     Route: 064
  2. DEXMEDETOMIDINE HYDROCHLORIDE. [Suspect]
     Active Substance: DEXMEDETOMIDINE HYDROCHLORIDE
     Indication: SEDATION
     Dosage: 0.8-1.0 MCG/KG (1 H)
     Route: 064
  3. DEXMEDETOMIDINE HYDROCHLORIDE. [Suspect]
     Active Substance: DEXMEDETOMIDINE HYDROCHLORIDE
     Indication: ANXIOLYTIC THERAPY
     Dosage: CONTINUED 0.8 ?G/KG, 1 H
     Route: 064
  4. DEXMEDETOMIDINE HYDROCHLORIDE. [Suspect]
     Active Substance: DEXMEDETOMIDINE HYDROCHLORIDE
     Dosage: WEANED BUT MAINTAINED (0.4 UG/KG,1 H)
     Route: 064

REACTIONS (2)
  - Foetal exposure during delivery [Unknown]
  - Apgar score low [Unknown]
